FAERS Safety Report 12502836 (Version 3)
Quarter: 2016Q3

REPORT INFORMATION
  Report Type: Report from Study
  Country: GB (occurrence: GB)
  Receive Date: 20160628
  Receipt Date: 20160725
  Transmission Date: 20161109
  Serious: Yes (Other)
  Sender: FDA-Public Use
  Company Number: GB-UCBSA-2016011841

PATIENT
  Sex: Male

DRUGS (3)
  1. CODEINE [Concomitant]
     Active Substance: CODEINE
     Indication: PAIN
     Dosage: 15 MG, FREQUENCY :3
     Route: 048
     Dates: start: 20140215
  2. PHENOXYMETHYLPENICILLIN [Concomitant]
     Active Substance: PENICILLIN V
     Indication: LOWER RESPIRATORY TRACT INFECTION
     Dosage: 250MG, 2 TAKEN 4 TIMES A DAY
     Dates: start: 20160331, end: 20160409
  3. CERTOLIZUMAB PEGOL [Suspect]
     Active Substance: CERTOLIZUMAB PEGOL
     Indication: AXIAL SPONDYLOARTHRITIS
     Dosage: 400 MG, EV 2 WEEKS(QOW)
     Route: 058
     Dates: start: 20160316, end: 2016

REACTIONS (8)
  - Oxygen saturation decreased [Unknown]
  - Dizziness [Recovered/Resolved]
  - Lower respiratory tract infection [Recovered/Resolved]
  - Malaise [Unknown]
  - Headache [Unknown]
  - Heart rate increased [Recovered/Resolved]
  - Cough [Not Recovered/Not Resolved]
  - Tonsillitis [Recovered/Resolved]

NARRATIVE: CASE EVENT DATE: 2016
